FAERS Safety Report 7827338-X (Version None)
Quarter: 2011Q4

REPORT INFORMATION
  Report Type: 
  Country: None (occurrence: None)
  Receive Date: 20111020
  Receipt Date: 20111012
  Transmission Date: 20120403
  Serious: Yes (Hospitalization)
  Sender: FDA-Public Use
  Company Number: NL-PFIZER INC-2011244700

PATIENT
  Age: 45 Year
  Sex: Male
  Weight: 68.4 kg

DRUGS (5)
  1. TRACLEER [Suspect]
     Indication: PULMONARY ARTERIAL HYPERTENSION
     Dosage: 250 MG, UNK
     Route: 048
     Dates: start: 20110210
  2. TREPROSTINIL SODIUM [Suspect]
     Indication: PULMONARY ARTERIAL HYPERTENSION
     Dosage: 15.5 MG, 2X/DAY
     Route: 048
     Dates: start: 20080410
  3. ACENOCOUMAROL [Concomitant]
     Indication: PROPHYLAXIS
     Dosage: UNK
     Route: 048
  4. REVATIO [Suspect]
     Indication: PULMONARY ARTERIAL HYPERTENSION
     Dosage: 60 MG, UNK
     Route: 048
  5. SPIRONOLACTONE [Concomitant]
     Indication: PROPHYLAXIS
     Dosage: 100 MG, UNK
     Route: 048

REACTIONS (1)
  - CARDIAC FAILURE [None]
